FAERS Safety Report 25290724 (Version 1)
Quarter: 2025Q2

REPORT INFORMATION
  Report Type: Spontaneous
  Country: US (occurrence: US)
  Receive Date: 20250510
  Receipt Date: 20250510
  Transmission Date: 20250717
  Serious: No
  Sender: SANOFI AVENTIS
  Company Number: US-SANOFI-02493921

PATIENT
  Sex: Male
  Weight: 83.64 kg

DRUGS (2)
  1. DUPIXENT [Suspect]
     Active Substance: DUPILUMAB
     Indication: Dermatitis atopic
     Dosage: 300 MG, QOW
     Route: 058
  2. KESIMPTA [Concomitant]
     Active Substance: OFATUMUMAB

REACTIONS (3)
  - Ear infection [Unknown]
  - Pyrexia [Unknown]
  - Sinusitis [Unknown]
